FAERS Safety Report 14469282 (Version 4)
Quarter: 2018Q3

REPORT INFORMATION
  Report Type: Spontaneous
  Country: JP (occurrence: JP)
  Receive Date: 20180131
  Receipt Date: 20180816
  Transmission Date: 20181010
  Serious: Yes (Death, Hospitalization, Other)
  Sender: FDA-Public Use
  Company Number: JP-ROCHE-2062491

PATIENT
  Age: 33 Year
  Sex: Male
  Weight: 90 kg

DRUGS (31)
  1. TISAGENLECLEUCEL. [Suspect]
     Active Substance: TISAGENLECLEUCEL
     Indication: DIFFUSE LARGE B-CELL LYMPHOMA
     Dosage: DOSAGE IS UNCERTAIN.
     Route: 065
     Dates: start: 20180105, end: 20180105
  2. PREDONINE [Concomitant]
     Active Substance: PREDNISOLONE
     Indication: ADRENAL INSUFFICIENCY
     Route: 042
     Dates: start: 20180103, end: 20180116
  3. PRIMPERAN [Concomitant]
     Active Substance: METOCLOPRAMIDE HYDROCHLORIDE
     Indication: NAUSEA
     Dosage: TAKEN AS NEEDED
     Route: 042
     Dates: start: 20171231
  4. SODIUM CHLORIDE. [Concomitant]
     Active Substance: SODIUM CHLORIDE
     Indication: ELECTROLYTE SUBSTITUTION THERAPY
     Route: 042
     Dates: start: 20180112, end: 20180116
  5. AMBISOME [Concomitant]
     Active Substance: AMPHOTERICIN B
     Indication: INFECTION PROPHYLAXIS
     Route: 042
     Dates: start: 20180122
  6. ACTEMRA [Suspect]
     Active Substance: TOCILIZUMAB
     Indication: CYTOKINE RELEASE SYNDROME
     Dosage: THERAPY START DATE: 13/JAN/2018.
     Route: 065
     Dates: start: 20180113, end: 20180113
  7. FEBURIC [Concomitant]
     Active Substance: FEBUXOSTAT
     Indication: PROPHYLAXIS
     Route: 048
     Dates: start: 20171221
  8. GABEXATE MESILATE [Concomitant]
     Active Substance: GABEXATE MESYLATE
     Indication: PANCREATIC ENZYMES INCREASED
     Route: 042
     Dates: start: 20180101, end: 20180202
  9. LASIX [Concomitant]
     Active Substance: FUROSEMIDE
     Dosage: PROPERLY ADJUSTING FLOW RATE (1/13?0.6ML(6MG)/)?DOSE INTERVAL UNCERTAINTY.
     Route: 042
     Dates: start: 20180113
  10. MEROPENEM. [Concomitant]
     Active Substance: MEROPENEM
     Indication: INFECTION PROPHYLAXIS
     Route: 042
     Dates: start: 20180105
  11. DAIPHEN [Concomitant]
     Active Substance: SULFAMETHOXAZOLE\TRIMETHOPRIM
     Indication: PROPHYLAXIS
     Route: 048
     Dates: start: 20170725
  12. BISONO [Concomitant]
     Active Substance: BISOPROLOL
     Indication: HYPERTENSION
     Route: 062
     Dates: start: 20180112
  13. DEXART [Concomitant]
     Active Substance: DEXAMETHASONE SODIUM PHOSPHATE
     Indication: DIFFUSE LARGE B-CELL LYMPHOMA
     Route: 042
     Dates: start: 20180215, end: 20180217
  14. MAGNESIUM OXIDE. [Concomitant]
     Active Substance: MAGNESIUM OXIDE
     Indication: CONSTIPATION
     Dosage: TAKEN AS NEEDED
     Route: 048
  15. TAKEPRON [Concomitant]
     Active Substance: LANSOPRAZOLE
     Indication: GASTRITIS
     Route: 042
     Dates: start: 20171221, end: 20180207
  16. BRUFEN [Concomitant]
     Active Substance: IBUPROFEN
     Indication: PYREXIA
     Route: 048
     Dates: start: 20180106
  17. LOCOID [Concomitant]
     Active Substance: HYDROCORTISONE BUTYRATE
     Indication: RASH
     Dosage: PROPER PROPER QUANTITY
     Route: 003
     Dates: start: 20171204
  18. ANAEMETRO [Concomitant]
     Active Substance: METRONIDAZOLE
     Indication: ENTERITIS INFECTIOUS
     Route: 042
     Dates: start: 20180113, end: 20180116
  19. ACELIO [Concomitant]
     Active Substance: ACETAMINOPHEN
     Indication: PROPHYLAXIS
     Dosage: TAKEN AS NEEDED
     Route: 042
     Dates: start: 20171220, end: 20180130
  20. ACELIO [Concomitant]
     Active Substance: ACETAMINOPHEN
     Indication: PYREXIA
     Route: 065
  21. POLARAMINE [Concomitant]
     Active Substance: DEXCHLORPHENIRAMINE MALEATE
     Indication: PROPHYLAXIS
     Dosage: TAKEN AS NEEDED
     Route: 042
     Dates: start: 20180105
  22. PRIMPERAN [Concomitant]
     Active Substance: METOCLOPRAMIDE HYDROCHLORIDE
     Indication: VOMITING
     Route: 065
  23. ACICLOVIN [Concomitant]
     Active Substance: ACYCLOVIR
     Indication: INFECTION PROPHYLAXIS
     Dosage: REPORTED AS ACTIOS
     Route: 042
     Dates: start: 20171226, end: 20180116
  24. MIRACLID [Concomitant]
     Active Substance: ULINASTATIN
     Indication: PANCREATIC ENZYMES INCREASED
     Route: 042
     Dates: start: 20171229, end: 20180130
  25. FENTANYL. [Concomitant]
     Active Substance: FENTANYL
     Indication: PAIN
     Dosage: PROPERLY ADJUSTING FLOW RATE (1/13?2.1ML/)?DOSE INTERVAL UNCERTAINTY.
     Route: 042
  26. VANCOMYCIN [Concomitant]
     Active Substance: VANCOMYCIN
     Indication: INFECTION PROPHYLAXIS
     Route: 042
     Dates: start: 20180113, end: 20180208
  27. ACTEMRA [Suspect]
     Active Substance: TOCILIZUMAB
     Route: 065
     Dates: start: 20180116, end: 20180116
  28. CANCIDAS [Concomitant]
     Active Substance: CASPOFUNGIN ACETATE
     Indication: INFECTION PROPHYLAXIS
     Route: 042
     Dates: start: 20171222, end: 20180130
  29. LASIX [Concomitant]
     Active Substance: FUROSEMIDE
     Indication: OEDEMA
     Dosage: TAKEN AS NEEDED
     Route: 042
     Dates: start: 20180101
  30. E KEPPRA [Concomitant]
     Active Substance: LEVETIRACETAM
     Indication: CONVULSION PROPHYLAXIS
     Route: 042
     Dates: start: 20180104, end: 20180116
  31. RECOMODULIN [Concomitant]
     Active Substance: THROMBOMODULIN ALFA
     Indication: DISSEMINATED INTRAVASCULAR COAGULATION
     Route: 042
     Dates: start: 20180106, end: 20180116

REACTIONS (14)
  - Anaemia [Fatal]
  - Histiocytosis haematophagic [Recovered/Resolved]
  - Off label use [Unknown]
  - Fungal infection [Not Recovered/Not Resolved]
  - Intra-abdominal haemorrhage [Fatal]
  - Shock haemorrhagic [Fatal]
  - Disseminated intravascular coagulation [Recovered/Resolved]
  - Neutrophil count increased [Unknown]
  - Diarrhoea [Recovered/Resolved]
  - Bacterial infection [Recovered/Resolved]
  - Disease progression [Fatal]
  - Hepatic function abnormal [Not Recovered/Not Resolved]
  - Cytokine release syndrome [Unknown]
  - Tumour lysis syndrome [Recovered/Resolved]

NARRATIVE: CASE EVENT DATE: 20180112
